FAERS Safety Report 21840467 (Version 1)
Quarter: 2023Q1

REPORT INFORMATION
  Report Type: Report from Study
  Country: US (occurrence: US)
  Receive Date: 20230110
  Receipt Date: 20230110
  Transmission Date: 20230418
  Serious: No
  Sender: FDA-Public Use
  Company Number: US-ACADIA PHARMACEUTICALS INC.-ACA-2022-PIM-003759

PATIENT
  Sex: Female

DRUGS (3)
  1. NUPLAZID [Suspect]
     Active Substance: PIMAVANSERIN TARTRATE
     Indication: Parkinson^s disease psychosis
     Dosage: 34 MILLIGRAM, QD
     Route: 048
  2. NUPLAZID [Suspect]
     Active Substance: PIMAVANSERIN TARTRATE
     Dosage: 34 MILLIGRAM, QD
     Route: 048
  3. QUETIAPINE [Concomitant]
     Active Substance: QUETIAPINE

REACTIONS (5)
  - Delusion [Unknown]
  - Insomnia [Not Recovered/Not Resolved]
  - Anger [Not Recovered/Not Resolved]
  - Product dose omission issue [Recovered/Resolved]
  - Hallucination [Unknown]
